FAERS Safety Report 5620178-1 (Version None)
Quarter: 2008Q1

REPORT INFORMATION
  Report Type: 
  Country: None (occurrence: None)
  Receive Date: 20080208
  Receipt Date: 20080129
  Transmission Date: 20080703
  Serious: Yes (Other)
  Sender: FDA-Public Use
  Company Number: DE-ELI_LILLY_AND_COMPANY-DE200801006827

PATIENT
  Sex: Female

DRUGS (3)
  1. ZYPREXA [Suspect]
     Indication: DELUSIONAL DISORDER, UNSPECIFIED TYPE
     Dosage: 5 MG, UNK
     Route: 048
     Dates: start: 20000101, end: 20070801
  2. RAMIPRIL [Concomitant]
  3. BISOPROLOL [Concomitant]

REACTIONS (1)
  - ANAEMIA MEGALOBLASTIC [None]
